FAERS Safety Report 23621520 (Version 1)
Quarter: 2024Q1

REPORT INFORMATION
  Report Type: Spontaneous
  Country: FR (occurrence: FR)
  Receive Date: 20240312
  Receipt Date: 20240312
  Transmission Date: 20240410
  Serious: Yes (Hospitalization)
  Sender: FDA-Public Use
  Company Number: FR-AFSSAPS-NY2023001619

PATIENT
  Age: 62 Year
  Sex: Male
  Weight: 85 kg

DRUGS (11)
  1. ATORVASTATIN [Suspect]
     Active Substance: ATORVASTATIN
     Indication: Dyslipidaemia
     Dosage: 10 MILLIGRAM, DAILY, IN THE EVENING
     Route: 048
     Dates: end: 20231020
  2. BACTRIM [Suspect]
     Active Substance: SULFAMETHOXAZOLE\TRIMETHOPRIM
     Indication: Skin ulcer
     Dosage: UNK
     Route: 065
     Dates: start: 20231012, end: 20231020
  3. HALOPERIDOL DECANOATE [Suspect]
     Active Substance: HALOPERIDOL DECANOATE
     Indication: Schizophrenia
     Dosage: 200 MILLIGRAM, 1DOSE/4WEEKS
     Route: 030
     Dates: start: 20180807, end: 20230926
  4. TRIMEPRAZINE [Concomitant]
     Active Substance: TRIMEPRAZINE
     Indication: Schizophrenia
     Dosage: 20 GTT DROPS, DAILY, AT BEDTIME
     Route: 048
  5. GABAPENTIN [Concomitant]
     Active Substance: GABAPENTIN
     Indication: Product used for unknown indication
     Dosage: 30 MILLIGRAM, TID
     Route: 048
  6. VALPROMIDE [Concomitant]
     Active Substance: VALPROMIDE
     Indication: Schizophrenia
     Dosage: 6 DOSAGE FORM, DAILY
     Route: 048
  7. LOXAPINE [Concomitant]
     Active Substance: LOXAPINE
     Indication: Schizophrenia
     Dosage: 350 GTT DROPS, DAILY, 100 IN THE MORNING, 100 AT NOON, 50 AT 4 P.M. AND 100 IN THE EVENING
     Route: 048
  8. KARDEGIC [Concomitant]
     Active Substance: ASPIRIN DL-LYSINE
     Indication: Cardiovascular event prophylaxis
     Dosage: 1 DOSAGE FORM, DAILY
     Route: 048
  9. PANTOPRAZOLE [Concomitant]
     Active Substance: PANTOPRAZOLE
     Indication: Product used for unknown indication
     Dosage: 20 MILLIGRAM, DAILY
     Route: 048
  10. POLYETHYLENE GLYCOL 4000 [Concomitant]
     Active Substance: POLYETHYLENE GLYCOL 4000
     Indication: Constipation
     Dosage: 2 DOSAGE FORM, DAILY, IN THE MORNING
     Route: 048
  11. TRIHEXYPHENIDYL HYDROCHLORIDE [Concomitant]
     Active Substance: TRIHEXYPHENIDYL HYDROCHLORIDE
     Indication: Adverse drug reaction
     Dosage: 2 DOSAGE FORM, DAILY, IN THE MORNING
     Route: 048

REACTIONS (1)
  - Rash [Recovering/Resolving]

NARRATIVE: CASE EVENT DATE: 20231019
